FAERS Safety Report 4981895-X (Version None)
Quarter: 2006Q2

REPORT INFORMATION
  Report Type: 
  Country: None (occurrence: None)
  Receive Date: 20060424
  Receipt Date: 20060424
  Transmission Date: 20061013
  Serious: Yes (Other)
  Sender: FDA-Public Use
  Company Number: None

PATIENT
  Age: 90 Year
  Sex: Male

DRUGS (8)
  1. APOKYN [Suspect]
     Indication: PARKINSON'S DISEASE
     Dosage: 2 MG PRN-OFF'.NTE 2/DAY SQ
     Route: 058
  2. TRIMETHOBENZAMI 300 MG MUTUAL [Suspect]
     Indication: NAUSEA
     Dosage: 300 MG TWICE A DAY PO
     Route: 048
  3. TRIMETHOBENZAMI 300 MG MUTUAL [Suspect]
     Indication: VOMITING
     Dosage: 300 MG TWICE A DAY PO
     Route: 048
  4. ALTACE [Concomitant]
  5. AMITIZA [Concomitant]
  6. CADUET [Concomitant]
  7. COENZYME Q10 [Concomitant]
  8. SINEMET [Concomitant]

REACTIONS (1)
  - YAWNING [None]
